FAERS Safety Report 9485919 (Version 2)
Quarter: 2013Q3

REPORT INFORMATION
  Report Type: Spontaneous
  Country: US (occurrence: None)
  Receive Date: 20130826
  Receipt Date: 20130910
  Transmission Date: 20140515
  Serious: Yes (Hospitalization)
  Sender: FDA-Public Use
  Company Number: 2013P1018550

PATIENT
  Age: 58 Year
  Sex: Female

DRUGS (9)
  1. OXTELLAR XR [Suspect]
     Indication: CONVULSION
     Route: 048
     Dates: start: 20130730, end: 20130825
  2. LACOSAMIDE [Concomitant]
  3. FERROUS SULFATE [Concomitant]
  4. CITALOPRAM [Concomitant]
  5. BABY ASPIRIN [Concomitant]
  6. VITAMIN D [Concomitant]
  7. SENNA [Concomitant]
  8. LORAZEPAM [Concomitant]
  9. MULTIVITAMIN [Concomitant]

REACTIONS (6)
  - Abnormal behaviour [None]
  - Coma [None]
  - Hyponatraemia [None]
  - Dehydration [None]
  - Hypovolaemia [None]
  - Blood chloride decreased [None]
